FAERS Safety Report 23422681 (Version 1)
Quarter: 2024Q1

REPORT INFORMATION
  Report Type: Report from Study
  Country: US (occurrence: US)
  Receive Date: 20240119
  Receipt Date: 20240119
  Transmission Date: 20240409
  Serious: Yes (Other)
  Sender: FDA-Public Use
  Company Number: US-AMRYT PHARMACEUTICALS DAC-AEGR006857

PATIENT
  Age: 23 Year
  Sex: Female

DRUGS (2)
  1. MYALEPT [Suspect]
     Active Substance: METRELEPTIN
     Indication: Congenital generalised lipodystrophy
     Dosage: 1 MILLILITER (100 UNITS)
     Route: 048
     Dates: start: 2009
  2. METFORMIN [Concomitant]
     Active Substance: METFORMIN HYDROCHLORIDE
     Indication: Congenital generalised lipodystrophy
     Dosage: 2 XR 500 MG CAPSULES DAILY
     Route: 048
     Dates: start: 2009

REACTIONS (1)
  - Blood triglycerides increased [Not Recovered/Not Resolved]
